FAERS Safety Report 16308053 (Version 1)
Quarter: 2019Q2

REPORT INFORMATION
  Report Type: Spontaneous
  Country: US (occurrence: US)
  Receive Date: 20190514
  Receipt Date: 20190514
  Transmission Date: 20190711
  Serious: No
  Sender: FDA-Public Use
  Company Number: US-BAYER-2019-088079

PATIENT
  Age: 65 Year
  Sex: Female

DRUGS (2)
  1. ADEMPAS [Suspect]
     Active Substance: RIOCIGUAT
     Dosage: UNK
     Route: 048
     Dates: start: 201809
  2. ADEMPAS [Suspect]
     Active Substance: RIOCIGUAT
     Dosage: 2.5 MG
     Route: 048
     Dates: end: 201812

REACTIONS (3)
  - Product dose omission [None]
  - Product availability issue [None]
  - Wrong technique in product usage process [None]

NARRATIVE: CASE EVENT DATE: 201809
